FAERS Safety Report 23249184 (Version 1)
Quarter: 2023Q4

REPORT INFORMATION
  Report Type: Spontaneous
  Country: US (occurrence: US)
  Receive Date: 20231201
  Receipt Date: 20231201
  Transmission Date: 20240109
  Serious: Yes (Hospitalization, Other)
  Sender: FDA-Public Use
  Company Number: US-HETERO-HET2023US03387

PATIENT
  Sex: Female

DRUGS (1)
  1. LANSOPRAZOLE [Suspect]
     Active Substance: LANSOPRAZOLE
     Indication: Product used for unknown indication
     Dosage: UNK
     Route: 065

REACTIONS (7)
  - Hypergastrinaemia [Recovered/Resolved]
  - Hyperparathyroidism secondary [Recovered/Resolved]
  - Achlorhydria [Recovering/Resolving]
  - Hypocalcaemia [Recovered/Resolved]
  - Malabsorption [Recovering/Resolving]
  - Bone demineralisation [Recovering/Resolving]
  - Hypomagnesaemia [Recovering/Resolving]
